FAERS Safety Report 13640288 (Version 2)
Quarter: 2017Q2

REPORT INFORMATION
  Report Type: Spontaneous
  Country: US (occurrence: US)
  Receive Date: 20170610
  Receipt Date: 20170616
  Transmission Date: 20170830
  Serious: No
  Sender: FDA-Public Use
  Company Number: US-009507513-1705USA011793

PATIENT
  Age: 26 Year
  Sex: Female
  Weight: 82.09 kg

DRUGS (1)
  1. NEXPLANON [Suspect]
     Active Substance: ETONOGESTREL
     Indication: CONTRACEPTION
     Dosage: 3 YEAR IMPLANT INSIDE THE LEFT ARM
     Route: 059

REACTIONS (3)
  - Hyperphagia [Unknown]
  - Weight increased [Unknown]
  - Vomiting [Unknown]
